FAERS Safety Report 14907720 (Version 1)
Quarter: 2018Q2

REPORT INFORMATION
  Report Type: Spontaneous
  Country: GB (occurrence: GB)
  Receive Date: 20180517
  Receipt Date: 20180517
  Transmission Date: 20180711
  Serious: Yes (Other)
  Sender: FDA-Public Use
  Company Number: GB-TEVA-2018-GB-892865

PATIENT
  Age: 45 Year
  Sex: Male
  Weight: 97 kg

DRUGS (14)
  1. AMLODIPINE [Suspect]
     Active Substance: AMLODIPINE BESYLATE
     Route: 065
     Dates: start: 20180305
  2. FULTIUM-D3 [Concomitant]
     Active Substance: CHOLECALCIFEROL
     Dosage: 3 DOSAGE FORMS DAILY;
     Route: 065
     Dates: start: 20180226
  3. BENDROFLUMETHIAZIDE [Concomitant]
     Active Substance: BENDROFLUMETHIAZIDE
     Dosage: 1 DOSAGE FORMS DAILY; EACH MORNING.
     Route: 065
     Dates: start: 20170209
  4. CLOBAZAM [Concomitant]
     Active Substance: CLOBAZAM
     Dosage: 3 DOSAGE FORMS DAILY; ONE IN THE MORNING AND TWO AT NIGHT
     Route: 065
     Dates: start: 20170209, end: 20180226
  5. LISINOPRIL. [Concomitant]
     Active Substance: LISINOPRIL
     Dosage: 1 DOSAGE FORMS DAILY;
     Route: 065
     Dates: start: 20170209
  6. PHENYTOIN SODIUM. [Concomitant]
     Active Substance: PHENYTOIN SODIUM
     Dosage: 4 DOSAGE FORMS DAILY;
     Route: 065
     Dates: start: 20170209
  7. QUININE [Concomitant]
     Active Substance: QUININE
     Dosage: 2 DOSAGE FORMS DAILY;
     Route: 065
     Dates: start: 20170209
  8. GLUCOSE [Concomitant]
     Active Substance: DEXTROSE
     Dosage: AS DIRECTED
     Route: 065
     Dates: start: 20170209
  9. ZONISAMIDE. [Concomitant]
     Active Substance: ZONISAMIDE
     Dosage: 6 DOSAGE FORMS DAILY;
     Route: 065
     Dates: start: 20170209
  10. GLUCAGON. [Concomitant]
     Active Substance: GLUCAGON
     Dosage: FOLLOW THE PACK INSTRUCTIONS
     Route: 065
     Dates: start: 20170209
  11. LANTUS [Concomitant]
     Active Substance: INSULIN GLARGINE
     Dosage: 40 IU (INTERNATIONAL UNIT) DAILY; IN THE MORNING AND EVENINGS
     Route: 065
     Dates: start: 20170209
  12. INSULIN ASPART [Concomitant]
     Active Substance: INSULIN ASPART
     Dosage: AS PER DOSAGE FOR NORMAL ADJUSTMENT.
     Route: 065
     Dates: start: 20170209
  13. FLUVASTATIN [Concomitant]
     Active Substance: FLUVASTATIN SODIUM
     Dosage: 2 DOSAGE FORMS DAILY;
     Route: 065
     Dates: start: 20170209
  14. KETOCONAZOLE. [Concomitant]
     Active Substance: KETOCONAZOLE
     Route: 065
     Dates: start: 20170518

REACTIONS (1)
  - Anaphylactic reaction [Unknown]
